FAERS Safety Report 18467051 (Version 3)
Quarter: 2025Q4

REPORT INFORMATION
  Report Type: Spontaneous
  Country: US (occurrence: US)
  Receive Date: 20201105
  Receipt Date: 20251112
  Transmission Date: 20260119
  Serious: No
  Sender: ACCORD
  Company Number: US-ACCORD-196335

PATIENT
  Age: 76 Year
  Sex: Male
  Weight: 79.38 kg

DRUGS (4)
  1. HYDROCHLOROTHIAZIDE [Suspect]
     Active Substance: HYDROCHLOROTHIAZIDE
     Indication: Hypertension
     Dosage: STRENGTH: 25 MG, DISPENSED IN A PHARMACY BOTTLE FOR 8 YEAR
     Route: 048
  2. HYDROCHLOROTHIAZIDE [Concomitant]
     Active Substance: HYDROCHLOROTHIAZIDE
  3. HYDROCHLOROTHIAZIDE [Suspect]
     Active Substance: HYDROCHLOROTHIAZIDE
     Indication: Hypertension
     Dosage: STRENGTH: 12.5 MG, DAILY
  4. HYDROCHLOROTHIAZIDE [Suspect]
     Active Substance: HYDROCHLOROTHIAZIDE
     Indication: Hypertension
     Dosage: STRENGTH: 25 MG
     Dates: start: 20240521

REACTIONS (10)
  - Drug ineffective [Unknown]
  - Product availability issue [Unknown]
  - Blood urine present [Recovered/Resolved]
  - Fatigue [Unknown]
  - Headache [Unknown]
  - Arthralgia [Unknown]
  - Mydriasis [Unknown]
  - Dry mouth [Unknown]
  - Expired product administered [Unknown]
  - Abdominal discomfort [Unknown]
